FAERS Safety Report 13803255 (Version 3)
Quarter: 2017Q4

REPORT INFORMATION
  Report Type: Spontaneous
  Country: IT (occurrence: IT)
  Receive Date: 20170728
  Receipt Date: 20171106
  Transmission Date: 20180320
  Serious: Yes (Other)
  Sender: FDA-Public Use
  Company Number: IT-SA-2017SA131310

PATIENT
  Age: 60 Year
  Sex: Female
  Weight: 101 kg

DRUGS (1)
  1. FERLIXIT [Suspect]
     Active Substance: SODIUM FERRIC GLUCONATE COMPLEX
     Dosage: 62.5 MG / 5 ML SOLUTION FOR ORAL USE AND USE IV 5 VIALS OF 5 ML
     Route: 051
     Dates: start: 20170626, end: 20170626

REACTIONS (2)
  - Hypertensive crisis [Recovered/Resolved]
  - Headache [Recovered/Resolved]

NARRATIVE: CASE EVENT DATE: 20170626
